FAERS Safety Report 25342323 (Version 1)
Quarter: 2025Q2

REPORT INFORMATION
  Report Type: Spontaneous
  Country: US (occurrence: None)
  Receive Date: 20250519
  Receipt Date: 20250519
  Transmission Date: 20250716
  Serious: Yes (Other)
  Sender: FDA-CTU
  Company Number: None

PATIENT
  Age: 9 Year
  Sex: Male
  Weight: 41.4 kg

DRUGS (5)
  1. SERTRALINE [Suspect]
     Active Substance: SERTRALINE HYDROCHLORIDE
     Indication: Abdominal pain
     Dosage: FREQUENCY : DAILY;?
     Route: 048
     Dates: start: 20250320, end: 20250428
  2. MIRALAX [Concomitant]
     Active Substance: POLYETHYLENE GLYCOL 3350
     Dates: start: 20250221
  3. ZINC GLUCONATE [Concomitant]
     Active Substance: ZINC GLUCONATE
     Dates: start: 20250221
  4. ASCORBIC ACID [Concomitant]
     Active Substance: ASCORBIC ACID
     Dates: start: 20250221
  5. Bifidobacterium-lactobacillus [Concomitant]
     Dates: start: 20250221

REACTIONS (7)
  - Grunting [None]
  - Screaming [None]
  - Constipation [None]
  - Restlessness [None]
  - Nervousness [None]
  - Nausea [None]
  - Hyperacusis [None]

NARRATIVE: CASE EVENT DATE: 20250410
